FAERS Safety Report 14127154 (Version 2)
Quarter: 2017Q4

REPORT INFORMATION
  Report Type: Report from Study
  Country: US (occurrence: US)
  Receive Date: 20171026
  Receipt Date: 20171102
  Transmission Date: 20180321
  Serious: Yes (Other)
  Sender: FDA-Public Use
  Company Number: PHEH2017US033509

PATIENT
  Sex: Female

DRUGS (3)
  1. NODOZ [Concomitant]
     Active Substance: CAFFEINE
     Indication: PRODUCT USED FOR UNKNOWN INDICATION
     Dosage: 1 DF, BID
     Route: 065
  2. BIOTIN [Concomitant]
     Active Substance: BIOTIN
     Indication: PRODUCT USED FOR UNKNOWN INDICATION
     Dosage: UNK
     Route: 065
  3. GLEEVEC [Suspect]
     Active Substance: IMATINIB MESYLATE
     Indication: CHRONIC MYELOID LEUKAEMIA
     Dosage: UNK
     Route: 065
     Dates: start: 1999

REACTIONS (9)
  - Alopecia [Recovering/Resolving]
  - Onychoclasis [Recovering/Resolving]
  - Neuropathy peripheral [Unknown]
  - Fatigue [Unknown]
  - Limb discomfort [Unknown]
  - Arthritis [Recovered/Resolved]
  - Diarrhoea [Unknown]
  - Malaise [Unknown]
  - Macular degeneration [Unknown]
